FAERS Safety Report 5809770-9 (Version None)
Quarter: 2008Q3

REPORT INFORMATION
  Report Type: 
  Country: None (occurrence: None)
  Receive Date: 20080715
  Receipt Date: 20080707
  Transmission Date: 20090109
  Serious: Yes (Hospitalization, Other)
  Sender: FDA-Public Use
  Company Number: US-AVENTIS-200814193US

PATIENT
  Sex: Male
  Weight: 121 kg

DRUGS (11)
  1. LANTUS [Suspect]
     Route: 058
  2. NOVOLOG [Suspect]
     Dosage: DOSE: SLIDING SCALE
  3. FUROSEMIDE [Concomitant]
  4. KLOR-CON [Concomitant]
  5. ASPIRIN [Concomitant]
  6. SPIRONOLACTONE [Concomitant]
  7. CRESTOR [Concomitant]
  8. LYRICA [Concomitant]
  9. METOPROLOL [Concomitant]
  10. GEODON                             /01487002/ [Concomitant]
  11. LAXATIVE [Concomitant]

REACTIONS (4)
  - CARDIAC FAILURE CONGESTIVE [None]
  - FLUID RETENTION [None]
  - HYPERGLYCAEMIA [None]
  - WEIGHT INCREASED [None]
